FAERS Safety Report 9153548 (Version 1)
Quarter: 2013Q1

REPORT INFORMATION
  Report Type: Spontaneous
  Country: US (occurrence: None)
  Receive Date: 20130306
  Receipt Date: 20130306
  Transmission Date: 20140127
  Serious: No
  Sender: FDA-Public Use
  Company Number: None

PATIENT
  Sex: Female
  Weight: 69.6 kg

DRUGS (20)
  1. BEVACIZUMAB (RHUMAB VEGF) (704865) [Suspect]
  2. CARBOPLATIN [Suspect]
  3. PACLITAXEL (TAXOL) [Suspect]
  4. ADAIR INHALER [Concomitant]
  5. ALBUTEROL INHALER [Concomitant]
  6. ELAVIL [Concomitant]
  7. KLOR-CON [Concomitant]
  8. LORAZEPAM [Concomitant]
  9. MAGIC MOUTHWASH [Concomitant]
  10. MARINOL [Concomitant]
  11. MUGUARD [Concomitant]
  12. NEURONTIN [Concomitant]
  13. OMEPRAZOLE [Concomitant]
  14. ONDANSETRON [Concomitant]
  15. OXYCONTIN [Concomitant]
  16. PERCOCET [Concomitant]
  17. PHENERGAN [Concomitant]
  18. PROAIR HFA [Concomitant]
  19. SABCUSO [Concomitant]
  20. SEROQUEL [Concomitant]

REACTIONS (3)
  - Nausea [None]
  - Oropharyngeal pain [None]
  - Faecal incontinence [None]
